FAERS Safety Report 12799350 (Version 3)
Quarter: 2016Q4

REPORT INFORMATION
  Report Type: Spontaneous
  Country: IT (occurrence: IT)
  Receive Date: 20160930
  Receipt Date: 20161110
  Transmission Date: 20170207
  Serious: Yes (Hospitalization)
  Sender: FDA-Public Use
  Company Number: IT-PFIZER INC-2016456743

PATIENT
  Age: 60 Year
  Sex: Male

DRUGS (3)
  1. SILDENAFIL CITRATE. [Suspect]
     Active Substance: SILDENAFIL CITRATE
     Indication: REYNOLD^S SYNDROME
     Dosage: 20 MG, 3X/DAY
     Dates: end: 201104
  2. ALLOPURINOL. [Concomitant]
     Active Substance: ALLOPURINOL
     Indication: HYPERURICAEMIA
     Dosage: UNK
     Route: 048
     Dates: end: 201104
  3. ATORVASTATIN [Concomitant]
     Active Substance: ATORVASTATIN
     Indication: HYPERCHOLESTEROLAEMIA
     Dosage: UNK
     Route: 048
     Dates: end: 201104

REACTIONS (4)
  - Rebound effect [Unknown]
  - Peripheral ischaemia [Recovered/Resolved]
  - Product use issue [Recovered/Resolved]
  - Myocardial fibrosis [Unknown]

NARRATIVE: CASE EVENT DATE: 2011
